FAERS Safety Report 6522533-4 (Version None)
Quarter: 2009Q4

REPORT INFORMATION
  Report Type: 
  Country: None (occurrence: None)
  Receive Date: 20091230
  Receipt Date: 20091218
  Transmission Date: 20100525
  Serious: Yes (Hospitalization, Other)
  Sender: FDA-Public Use
  Company Number: US-AMGEN-QUU381549

PATIENT
  Sex: Female

DRUGS (1)
  1. ENBREL [Suspect]
     Indication: PSORIATIC ARTHROPATHY
     Route: 058
     Dates: start: 20030110

REACTIONS (4)
  - BASAL CELL CARCINOMA [None]
  - PATELLA FRACTURE [None]
  - ROAD TRAFFIC ACCIDENT [None]
  - TIBIA FRACTURE [None]
